FAERS Safety Report 6890034-X (Version None)
Quarter: 2010Q3

REPORT INFORMATION
  Report Type: 
  Country: None (occurrence: None)
  Receive Date: 20100730
  Receipt Date: 20080710
  Transmission Date: 20110219
  Serious: No
  Sender: FDA-Public Use
  Company Number: US-PFIZER INC-2008058442

PATIENT
  Age: 80 Year
  Sex: Male

DRUGS (8)
  1. LIPITOR [Suspect]
     Indication: BLOOD CHOLESTEROL INCREASED
     Dates: end: 20080601
  2. ACEON [Suspect]
     Indication: HYPERTENSION
     Dates: end: 20080601
  3. CLARITIN [Concomitant]
     Indication: SEASONAL ALLERGY
  4. CALCIUM [Concomitant]
  5. CENTRUM [Concomitant]
  6. VITAMIN B-12 [Concomitant]
  7. BABYPRIN [Concomitant]
  8. MULTIVITAMIN [Concomitant]

REACTIONS (3)
  - ADVERSE DRUG REACTION [None]
  - PRURITUS GENERALISED [None]
  - RASH [None]
